FAERS Safety Report 6935621-5 (Version None)
Quarter: 2010Q3

REPORT INFORMATION
  Report Type: 
  Country: None (occurrence: None)
  Receive Date: 20100823
  Receipt Date: 20100809
  Transmission Date: 20110219
  Serious: No
  Sender: FDA-Public Use
  Company Number: BR-US-EMD SERONO, INC.-7013863

PATIENT
  Sex: Female

DRUGS (15)
  1. REBIF [Suspect]
     Indication: RELAPSING-REMITTING MULTIPLE SCLEROSIS
     Route: 058
     Dates: start: 20020101
  2. TRAMAL [Concomitant]
  3. MIOSAN [Concomitant]
  4. NEOZINE [Concomitant]
  5. VALIUM [Concomitant]
  6. LASIX [Concomitant]
  7. ATENOLOL [Concomitant]
  8. OMEPRAZOLE [Concomitant]
  9. ALBUTEROL SULFATE AUTOHALER [Concomitant]
  10. FUROSEMIDE [Concomitant]
  11. ENALAPRIL MALEATE [Concomitant]
  12. DIAZEPAM [Concomitant]
  13. MYLANTA [Concomitant]
  14. ACETAMINOPHEN [Concomitant]
  15. MORPHINE [Concomitant]

REACTIONS (1)
  - CHOLELITHIASIS [None]
